FAERS Safety Report 6927156-0 (Version None)
Quarter: 2010Q3

REPORT INFORMATION
  Report Type: 
  Country: None (occurrence: None)
  Receive Date: 20100816
  Receipt Date: 20100728
  Transmission Date: 20110219
  Serious: No
  Sender: FDA-Public Use
  Company Number: US-ABBOTT-10P-163-0661946-00

PATIENT
  Sex: Female
  Weight: 81.266 kg

DRUGS (8)
  1. SIMCOR [Suspect]
     Indication: BLOOD CHOLESTEROL INCREASED
     Dosage: 500/20MG EVERY NIGHT
     Dates: start: 20100726
  2. ASPIRIN [Concomitant]
     Indication: PRODUCT USED FOR UNKNOWN INDICATION
     Dosage: 30 MINUTES BEFORE TAKING SIMCOR
  3. DIOVAN [Concomitant]
     Indication: HYPERTENSION
  4. HYDROCHLOROTHIAZIDE [Concomitant]
     Indication: HYPERTENSION
  5. NORVASC [Concomitant]
     Indication: HYPERTENSION
  6. NASONEX [Concomitant]
     Indication: ALLERGIC SINUSITIS
     Route: 045
  7. FEXOFENADINE [Concomitant]
     Indication: ALLERGIC SINUSITIS
  8. ASTEPRO [Concomitant]
     Indication: ALLERGIC SINUSITIS

REACTIONS (3)
  - FATIGUE [None]
  - MUSCULAR WEAKNESS [None]
  - PYREXIA [None]
